FAERS Safety Report 9210849 (Version 1)
Quarter: 2013Q2

REPORT INFORMATION
  Report Type: Spontaneous
  Country: US (occurrence: US)
  Receive Date: 20130404
  Receipt Date: 20130404
  Transmission Date: 20140414
  Serious: No
  Sender: FDA-Public Use
  Company Number: US-ASTRAZENECA-2013SE20447

PATIENT
  Age: 20 Year
  Sex: Female
  Weight: 54.4 kg

DRUGS (1)
  1. NEXIUM [Suspect]
     Indication: GASTRITIS
     Route: 048
     Dates: start: 20130308, end: 20130323

REACTIONS (3)
  - Dyspepsia [Unknown]
  - Abdominal pain upper [Unknown]
  - Off label use [Unknown]
